FAERS Safety Report 4830053-8 (Version None)
Quarter: 2005Q4

REPORT INFORMATION
  Report Type: 
  Country: None (occurrence: None)
  Receive Date: 20051115
  Receipt Date: 20051115
  Transmission Date: 20060501
  Serious: Yes (Hospitalization)
  Sender: FDA-Public Use
  Company Number: None

PATIENT
  Sex: Female
  Weight: 60 kg

DRUGS (4)
  1. FLUVOXAMINE  150 MG -UDL [Suspect]
     Indication: OBSESSIVE-COMPULSIVE DISORDER
     Dosage: 150 MG BID PO
     Route: 048
     Dates: start: 20030317, end: 20051020
  2. LEVOTHROXINE [Concomitant]
  3. CALCIUM CARBONATE [Concomitant]
  4. MULTIVITAMIN W/MINERAL [Concomitant]

REACTIONS (6)
  - CLONUS [None]
  - HYPERREFLEXIA [None]
  - MUSCLE SPASTICITY [None]
  - MUSCULOSKELETAL STIFFNESS [None]
  - ORAL INTAKE REDUCED [None]
  - SEROTONIN SYNDROME [None]
